FAERS Safety Report 6268692-2 (Version None)
Quarter: 2009Q3

REPORT INFORMATION
  Report Type: 
  Country: None (occurrence: None)
  Receive Date: 20090714
  Receipt Date: 20090714
  Transmission Date: 20100115
  Serious: No
  Sender: FDA-Public Use
  Company Number: None

PATIENT
  Age: 78 Year
  Sex: Female
  Weight: 71.6683 kg

DRUGS (4)
  1. ACTONEL [Suspect]
     Indication: BONE DENSITOMETRY
     Dosage: 1 PER MONTH PO
     Route: 048
     Dates: start: 20090507, end: 20090607
  2. ACTONEL [Suspect]
     Indication: PROPHYLAXIS
     Dosage: 1 PER MONTH PO
     Route: 048
     Dates: start: 20090507, end: 20090607
  3. ACTONEL [Suspect]
     Indication: RESORPTION BONE INCREASED
     Dosage: 1 PER MONTH PO
     Route: 048
     Dates: start: 20090507, end: 20090607
  4. CYMBALTA [Concomitant]

REACTIONS (6)
  - ARTHRALGIA [None]
  - DECREASED APPETITE [None]
  - DYSPHONIA [None]
  - DYSPNOEA [None]
  - JOINT SWELLING [None]
  - PAIN IN JAW [None]
